FAERS Safety Report 14601494 (Version 2)
Quarter: 2018Q2

REPORT INFORMATION
  Report Type: Spontaneous
  Country: US (occurrence: US)
  Receive Date: 20180306
  Receipt Date: 20180412
  Transmission Date: 20180711
  Serious: Yes (Other)
  Sender: FDA-Public Use
  Company Number: US-GILEAD-2018-0324117

PATIENT
  Age: 67 Year
  Sex: Male
  Weight: 141.4 kg

DRUGS (1)
  1. EPCLUSA [Suspect]
     Active Substance: SOFOSBUVIR\VELPATASVIR
     Indication: CHRONIC HEPATITIS C
     Dosage: 1 DF, UNK
     Route: 048
     Dates: start: 20171208, end: 20180301

REACTIONS (2)
  - Oedema peripheral [Not Recovered/Not Resolved]
  - Dermatitis bullous [Unknown]

NARRATIVE: CASE EVENT DATE: 201802
